FAERS Safety Report 9896228 (Version 2)
Quarter: 2014Q1

REPORT INFORMATION
  Report Type: Spontaneous
  Country: US (occurrence: US)
  Receive Date: 20140213
  Receipt Date: 20140213
  Transmission Date: 20141002
  Serious: No
  Sender: FDA-Public Use
  Company Number: US-BRISTOL-MYERS SQUIBB COMPANY-17423500

PATIENT
  Age: 54 Year
  Sex: Male

DRUGS (11)
  1. ORENCIA [Suspect]
     Indication: RHEUMATOID ARTHRITIS
     Dosage: LAST INF:8FEB13?LOT#2H62376,JUL15
     Route: 042
  2. SKELAXIN [Concomitant]
  3. FLEXERIL [Concomitant]
  4. LORTAB [Concomitant]
  5. PERCOCET [Concomitant]
  6. BENICAR [Concomitant]
  7. LUNESTA [Concomitant]
  8. CELEBREX [Concomitant]
  9. ULTRAM [Concomitant]
  10. FLOMAX [Concomitant]
  11. VESICARE [Concomitant]

REACTIONS (3)
  - Osteoarthritis [Unknown]
  - Hypoaesthesia [Unknown]
  - Paraesthesia [Unknown]
